FAERS Safety Report 10793021 (Version 5)
Quarter: 2015Q2

REPORT INFORMATION
  Report Type: Spontaneous
  Country: US (occurrence: US)
  Receive Date: 20150213
  Receipt Date: 20150427
  Transmission Date: 20150821
  Serious: Yes (Hospitalization, Other)
  Sender: FDA-Public Use
  Company Number: US-AMGEN-USASL2015012307

PATIENT
  Age: 67 Year
  Sex: Female

DRUGS (1)
  1. ENBREL [Suspect]
     Active Substance: ETANERCEPT
     Indication: RHEUMATOID ARTHRITIS
     Dosage: 50 MG, QWK
     Route: 058
     Dates: start: 20110101, end: 20150211

REACTIONS (7)
  - Pleural effusion [Not Recovered/Not Resolved]
  - Cardiac valve disease [Recovered/Resolved]
  - Lymphadenopathy [Unknown]
  - Cardiomegaly [Recovered/Resolved]
  - Pericardial effusion [Not Recovered/Not Resolved]
  - Cardiac failure congestive [Recovered/Resolved]
  - Sinusitis [Not Recovered/Not Resolved]

NARRATIVE: CASE EVENT DATE: 201501
